FAERS Safety Report 8977881 (Version 1)
Quarter: 2012Q4

REPORT INFORMATION
  Report Type: 
  Country: US (occurrence: US)
  Receive Date: 20121220
  Receipt Date: 20121220
  Transmission Date: 20130627
  Serious: Yes (Death)
  Sender: FDA-Public Use
  Company Number: PHEH2012US024965

PATIENT
  Age: 88 Year
  Sex: Male

DRUGS (1)
  1. EXELON PATCH [Suspect]
     Route: 062

REACTIONS (4)
  - Death [Fatal]
  - Nausea [Unknown]
  - Vomiting [Unknown]
  - Diarrhoea [Unknown]
